FAERS Safety Report 18705494 (Version 1)
Quarter: 2021Q1

REPORT INFORMATION
  Report Type: Report from Study
  Country: PL (occurrence: PL)
  Receive Date: 20210106
  Receipt Date: 20210106
  Transmission Date: 20210419
  Serious: Yes (Life-Threatening, Other)
  Sender: FDA-Public Use
  Company Number: PL-ACCORD-213509

PATIENT
  Age: 176 Month
  Sex: Female

DRUGS (3)
  1. MELPHALAN. [Suspect]
     Active Substance: MELPHALAN
     Indication: OVARIAN GERM CELL ENDODERMAL SINUS TUMOUR
  2. CARBOPLATIN. [Suspect]
     Active Substance: CARBOPLATIN
     Indication: OVARIAN GERM CELL ENDODERMAL SINUS TUMOUR
  3. ETOPOSIDE. [Suspect]
     Active Substance: ETOPOSIDE
     Indication: OVARIAN GERM CELL ENDODERMAL SINUS TUMOUR

REACTIONS (9)
  - Pyrexia [Unknown]
  - Neutropenia [Unknown]
  - Hepatic enzyme abnormal [Unknown]
  - Sepsis [Unknown]
  - Blood creatinine [Unknown]
  - Oliguria [Unknown]
  - Off label use [Unknown]
  - Mucosal inflammation [Unknown]
  - Leukopenia [Unknown]
